FAERS Safety Report 5454092-1 (Version None)
Quarter: 2007Q3

REPORT INFORMATION
  Report Type: 
  Country: None (occurrence: None)
  Receive Date: 20070917
  Receipt Date: 20070531
  Transmission Date: 20080115
  Serious: Yes (Other)
  Sender: FDA-Public Use
  Company Number: US-ASTRAZENECA-2006UW08087

PATIENT
  Age: 53 Year
  Sex: Female
  Weight: 159.1 kg

DRUGS (1)
  1. SEROQUEL [Suspect]
     Route: 048
     Dates: start: 19980401, end: 20020301

REACTIONS (2)
  - DIABETES MELLITUS [None]
  - PANCREATITIS [None]
